FAERS Safety Report 21753827 (Version 4)
Quarter: 2023Q1

REPORT INFORMATION
  Report Type: Spontaneous
  Country: US (occurrence: US)
  Receive Date: 20221220
  Receipt Date: 20230106
  Transmission Date: 20230418
  Serious: Yes (Hospitalization)
  Sender: FDA-Public Use
  Company Number: US-35507-2022-14474

PATIENT

DRUGS (3)
  1. SERTRALINE HYDROCHLORIDE [Suspect]
     Active Substance: SERTRALINE HYDROCHLORIDE
     Indication: Anxiety
     Dosage: 25 MG, QD
     Route: 048
     Dates: start: 20221026, end: 20221110
  2. SERTRALINE HYDROCHLORIDE [Suspect]
     Active Substance: SERTRALINE HYDROCHLORIDE
     Dosage: 25 MG, QD (REINITIATED)
     Route: 048
  3. SERTRALINE HYDROCHLORIDE [Suspect]
     Active Substance: SERTRALINE HYDROCHLORIDE
     Indication: Anxiety
     Dosage: 50 MG, QD
     Route: 048
     Dates: start: 20221110

REACTIONS (19)
  - Illness [Recovering/Resolving]
  - Hypomania [Not Recovered/Not Resolved]
  - Mania [Not Recovered/Not Resolved]
  - Decreased appetite [Recovering/Resolving]
  - Aggression [Recovering/Resolving]
  - Personality change [Recovering/Resolving]
  - Pressure of speech [Recovering/Resolving]
  - Weight decreased [Recovering/Resolving]
  - Malaise [Recovering/Resolving]
  - Crying [Recovering/Resolving]
  - Inappropriate affect [Recovering/Resolving]
  - Disturbance in sexual arousal [Recovering/Resolving]
  - Disturbance in attention [Recovering/Resolving]
  - Obsessive-compulsive disorder [Recovering/Resolving]
  - Affect lability [Recovering/Resolving]
  - Mood swings [Recovering/Resolving]
  - Emotional disorder [Recovering/Resolving]
  - Mental disorder [Recovering/Resolving]
  - Irritability [Recovering/Resolving]

NARRATIVE: CASE EVENT DATE: 20221204
